FAERS Safety Report 18129304 (Version 3)
Quarter: 2025Q3

REPORT INFORMATION
  Report Type: Report from Study
  Country: PK (occurrence: PK)
  Receive Date: 20200810
  Receipt Date: 20250708
  Transmission Date: 20251021
  Serious: Yes (Death)
  Sender: NOVARTIS
  Company Number: PK-NOVARTISPH-NVSC2020PK221065

PATIENT
  Sex: Male
  Weight: 58 kg

DRUGS (1)
  1. TASIGNA [Suspect]
     Active Substance: NILOTINIB
     Indication: Philadelphia positive chronic myeloid leukaemia
     Dosage: 600 MG, BID
     Route: 048
     Dates: start: 20160225

REACTIONS (4)
  - Coronavirus test positive [Fatal]
  - Pyrexia [Fatal]
  - Cough [Fatal]
  - Dyspnoea [Fatal]
